FAERS Safety Report 9625834 (Version 1)
Quarter: 2013Q4

REPORT INFORMATION
  Report Type: Spontaneous
  Country: US (occurrence: None)
  Receive Date: 20131015
  Receipt Date: 20131015
  Transmission Date: 20140711
  Serious: Yes (Life-Threatening, Hospitalization)
  Sender: FDA-Public Use
  Company Number: None

PATIENT
  Age: 2 Year
  Sex: Female

DRUGS (1)
  1. ATROVENT [Suspect]
     Indication: WHEEZING
     Dates: start: 20061207

REACTIONS (2)
  - No therapeutic response [None]
  - Drug hypersensitivity [None]
